FAERS Safety Report 8615754-8 (Version None)
Quarter: 2012Q3

REPORT INFORMATION
  Report Type: 
  Country: None (occurrence: None)
  Receive Date: 20120823
  Receipt Date: 20120814
  Transmission Date: 20120928
  Serious: Yes (Hospitalization, Other)
  Sender: FDA-Public Use
  Company Number: US-ALEXION PHARMACEUTICALS INC.-A201201328

PATIENT
  Sex: Female
  Weight: 72.1 kg

DRUGS (12)
  1. ISOSORBIDE MONONITRATE CR [Concomitant]
     Dosage: 60 MG, QD
     Route: 048
  2. SYNTHROID [Concomitant]
     Indication: HYPOTHYROIDISM
     Dosage: 100 ?G, QD
     Route: 048
  3. PRILOSEC [Concomitant]
     Dosage: 20 MG, QD
     Route: 048
  4. AMLODIPINE BESYLATE [Concomitant]
     Dosage: 5 MG, QID
     Route: 048
  5. SOLIRIS [Suspect]
     Indication: PAROXYSMAL NOCTURNAL HAEMOGLOBINURIA
     Dosage: 600 MG, QW X 4
     Route: 042
     Dates: start: 20120423
  6. SOLIRIS [Suspect]
     Dosage: 900 MG, Q2W
     Route: 042
     Dates: start: 20120531, end: 20120614
  7. RANEXA [Concomitant]
     Dosage: 500 MG, BID
     Route: 048
  8. NITROGLYCERIN [Concomitant]
     Dosage: 0.4 MG, PRN
     Route: 060
  9. LOPRESSOR [Concomitant]
     Dosage: 100 MG, BID
     Route: 048
  10. ASPIRIN [Concomitant]
     Dosage: 81 MG, QD
     Route: 048
  11. CRESTOR [Concomitant]
     Indication: HYPERLIPIDAEMIA
     Dosage: 40 MG, QD
     Route: 048
  12. CYMBALTA [Concomitant]
     Dosage: 30 MG, 3 AT BEDTIME
     Route: 048

REACTIONS (7)
  - BACK PAIN [None]
  - CELLULITIS [None]
  - BLOOD PRESSURE DECREASED [None]
  - CHEST PAIN [None]
  - THROMBOCYTOPENIA [None]
  - WHITE BLOOD CELL COUNT DECREASED [None]
  - HAEMOGLOBIN DECREASED [None]
